FAERS Safety Report 12105132 (Version 2)
Quarter: 2016Q4

REPORT INFORMATION
  Report Type: Spontaneous
  Country: US (occurrence: US)
  Receive Date: 20160223
  Receipt Date: 20161216
  Transmission Date: 20170206
  Serious: Yes (Other)
  Sender: FDA-Public Use
  Company Number: US-AMGEN-USASP2015140966

PATIENT
  Age: 34 Year
  Sex: Female

DRUGS (5)
  1. FOLIC ACID. [Concomitant]
     Active Substance: FOLIC ACID
     Dosage: UNK UNK, QD
     Route: 048
     Dates: start: 201510
  2. NEUPOGEN [Suspect]
     Active Substance: FILGRASTIM
     Indication: NEUTROPENIA
     Dosage: 40 MUG, QD (DAILY)
     Route: 058
     Dates: start: 201004
  3. VITAMIN C [Concomitant]
     Active Substance: ASCORBIC ACID
     Dosage: UNK UNK, QD
     Route: 048
     Dates: start: 201510
  4. PRENATAL VITAMINS [Concomitant]
     Active Substance: VITAMINS
     Dosage: UNK UNK, DAILY
     Route: 048
     Dates: start: 201510
  5. MILK THISTLE [Concomitant]
     Active Substance: MILK THISTLE
     Dosage: UNK UNK, DAILY
     Route: 048
     Dates: start: 201510, end: 201512

REACTIONS (2)
  - Haemorrhage in pregnancy [Recovered/Resolved]
  - Maternal exposure during pregnancy [Not Recovered/Not Resolved]

NARRATIVE: CASE EVENT DATE: 2015
